FAERS Safety Report 12828876 (Version 1)
Quarter: 2016Q4

REPORT INFORMATION
  Report Type: Spontaneous
  Country: US (occurrence: US)
  Receive Date: 20161007
  Receipt Date: 20161007
  Transmission Date: 20170207
  Serious: No
  Sender: FDA-Public Use
  Company Number: US-SA-2015SA172400

PATIENT
  Sex: Female

DRUGS (18)
  1. MONTELUKAST [Concomitant]
     Active Substance: MONTELUKAST SODIUM
     Dosage: STRENGTH: 10 MG
  2. LEVOFLOXACIN. [Concomitant]
     Active Substance: LEVOFLOXACIN
     Dosage: STRENGTH: 500 AND 750 MG
  3. SOLU-MEDROL [Concomitant]
     Active Substance: METHYLPREDNISOLONE SODIUM SUCCINATE
     Dosage: STRENGTH: 1 GM
  4. FUROSEMIDE. [Concomitant]
     Active Substance: FUROSEMIDE
     Dosage: STRENGTH: 20 MG
  5. LOSARTAN. [Concomitant]
     Active Substance: LOSARTAN
     Dosage: STRENGTH:50 MG
  6. AUBAGIO [Suspect]
     Active Substance: TERIFLUNOMIDE
     Indication: MULTIPLE SCLEROSIS
     Route: 048
  7. ALPRAZOLAM. [Concomitant]
     Active Substance: ALPRAZOLAM
     Dosage: STRENGTH: 0.25 MG
  8. ETODOLAC. [Concomitant]
     Active Substance: ETODOLAC
     Dosage: STRENGTH: 300 MG
  9. TRAMADOL. [Concomitant]
     Active Substance: TRAMADOL
     Dosage: STRENGTH: 50 MG
  10. FLUZONE [Concomitant]
     Active Substance: INFLUENZA A VIRUS A/CALIFORNIA/7/2009 X-179A (H1N1) ANTIGEN (FORMALDEHYDE INACTIVATED)\INFLUENZA A VIRUS A/VICTORIA/210/2009 X-187 (H3N2) ANTIGEN (FORMALDEHYDE INACTIVATED)\INFLUENZA B VIRUS B/BRISBANE/60/2008 ANTIGEN (FORMALDEHYDE INACTIVATED)
  11. HYDROCODONE/PARACETAMOL [Concomitant]
     Dosage: STRENGTH: 7.5/325
  12. ONDANSETRON [Concomitant]
     Active Substance: ONDANSETRON
     Dosage: STRENGTH: 4 MG
  13. DEXILANT [Concomitant]
     Active Substance: DEXLANSOPRAZOLE
     Dosage: STRENGTH: 60 MG
  14. AMANTADINE [Concomitant]
     Active Substance: AMANTADINE
     Dosage: STRENGTH: 100 MG
  15. LYRICA [Concomitant]
     Active Substance: PREGABALIN
     Dosage: STRENGTH: 75 MG
  16. ATORVASTATIN [Concomitant]
     Active Substance: ATORVASTATIN
     Dosage: STRENGTH: 20 MG
  17. COPAXONE [Concomitant]
     Active Substance: GLATIRAMER ACETATE
     Dosage: STRENGTH: 40 MG/ML
  18. KLOR-CON [Concomitant]
     Active Substance: POTASSIUM CHLORIDE

REACTIONS (3)
  - Heart rate increased [Not Recovered/Not Resolved]
  - Diarrhoea [Not Recovered/Not Resolved]
  - Blood pressure increased [Not Recovered/Not Resolved]
